FAERS Safety Report 5024401-6 (Version None)
Quarter: 2006Q2

REPORT INFORMATION
  Report Type: 
  Country: None (occurrence: None)
  Receive Date: 20060613
  Receipt Date: 20060603
  Transmission Date: 20061013
  Serious: Yes (Hospitalization, Other)
  Sender: FDA-Public Use
  Company Number: PHBS2006IE08526

PATIENT
  Sex: Male

DRUGS (3)
  1. CLOZARIL [Suspect]
     Indication: ACCIDENTAL EXPOSURE
     Dosage: 1 DF, ONCE/SINGLE
     Route: 048
  2. ALCOHOL [Suspect]
     Route: 048
  3. ECSTASY [Suspect]
     Dosage: SEVERAL TABLETS
     Route: 048

REACTIONS (1)
  - ACCIDENTAL EXPOSURE [None]
